FAERS Safety Report 9688900 (Version 1)
Quarter: 2013Q4

REPORT INFORMATION
  Report Type: Spontaneous
  Country: US (occurrence: None)
  Receive Date: 20131113
  Receipt Date: 20131113
  Transmission Date: 20140711
  Serious: Yes (Hospitalization, Other)
  Sender: FDA-Public Use
  Company Number: FK201304881

PATIENT
  Age: 41 Year
  Sex: Female

DRUGS (5)
  1. IFOSFAMIDE [Suspect]
     Indication: SARCOMA UTERUS
     Dosage: 1500 MG/M2, DAILY OVER 90 MIN
  2. CISPLATIN [Suspect]
     Indication: SARCOMA UTERUS
     Dosage: 20 MG/M2
  3. APREPITANT [Suspect]
     Indication: PREMEDICATION
  4. MESNA (MESNA) [Concomitant]
  5. DEXAMETHASONE (DEXAMETHASONE) [Concomitant]

REACTIONS (5)
  - Drug interaction [None]
  - Affect lability [None]
  - Hallucinations, mixed [None]
  - Mental status changes [None]
  - Neurotoxicity [None]
